FAERS Safety Report 8920334 (Version 1)
Quarter: 2012Q4

REPORT INFORMATION
  Report Type: 
  Country: AU (occurrence: AU)
  Receive Date: 20121121
  Receipt Date: 20121121
  Transmission Date: 20130627
  Serious: Yes (Hospitalization, Other)
  Sender: FDA-Public Use
  Company Number: AU-B.I. PHARMACEUTICALS,INC./RIDGEFIELD-2012-AU-01886AU

PATIENT
  Age: 5 None
  Sex: Male

DRUGS (1)
  1. PRADAXA [Suspect]
     Dosage: 300 mg

REACTIONS (1)
  - Cerebrovascular accident [Unknown]
